FAERS Safety Report 17191288 (Version 1)
Quarter: 2019Q4

REPORT INFORMATION
  Report Type: Spontaneous
  Country: US (occurrence: US)
  Receive Date: 20191221
  Receipt Date: 20191221
  Transmission Date: 20200122
  Serious: Yes (Other)
  Sender: FDA-Public Use
  Company Number: None

PATIENT
  Age: 53 Year
  Sex: Male
  Weight: 117 kg

DRUGS (14)
  1. TRILEPTAL [Concomitant]
     Active Substance: OXCARBAZEPINE
  2. LISINOPRIL. [Concomitant]
     Active Substance: LISINOPRIL
  3. ONE-A-DAY VITAMINS FOR MEN [Concomitant]
  4. HUMIRA [Concomitant]
     Active Substance: ADALIMUMAB
  5. KLONOPIN 1 MG [Concomitant]
  6. ATORVASTATIN 80MG [Concomitant]
     Active Substance: ATORVASTATIN
  7. GLIPIZIDE 10 MG [Concomitant]
     Active Substance: GLIPIZIDE
  8. TRULICITY [Suspect]
     Active Substance: DULAGLUTIDE
     Indication: DIABETES MELLITUS
     Dosage: ?          OTHER FREQUENCY:ONCE A WEEK;OTHER ROUTE:INJECTION ON STOMACH AREA?
     Dates: start: 20190101, end: 20190131
  9. PAXIL 40MG [Concomitant]
  10. COREG 25 MG [Concomitant]
  11. LEVEMIR 25 UNITS [Concomitant]
  12. METFORMIN 500MG [Concomitant]
     Active Substance: METFORMIN HYDROCHLORIDE
  13. HUMULIN 70/30 20 UNITS [Concomitant]
  14. GEMFIBROZIL 600MG [Concomitant]
     Active Substance: GEMFIBROZIL

REACTIONS (2)
  - Diarrhoea [None]
  - Constipation [None]

NARRATIVE: CASE EVENT DATE: 20190131
